FAERS Safety Report 8485669 (Version 2)
Quarter: 2012Q4

REPORT INFORMATION
  Report Type: Report from Study
  Country: GB (occurrence: GB)
  Receive Date: 20120330
  Receipt Date: 20121107
  Transmission Date: 20130627
  Serious: Yes (Death, Other)
  Sender: FDA-Public Use
  Company Number: GB-ROCHE-1038575

PATIENT
  Age: 73 Year
  Sex: Female
  Weight: 66 kg

DRUGS (2)
  1. RITUXIMAB [Suspect]
     Indication: PRODUCT USED FOR UNKNOWN INDICATION
     Dosage: last dose prior to SAE: 26/May/2011
     Route: 065
     Dates: start: 20110512
  2. METHOTREXATE [Concomitant]

REACTIONS (2)
  - Lung cancer metastatic [Fatal]
  - Cerebrovascular disorder [Fatal]
